FAERS Safety Report 9349053 (Version 1)
Quarter: 2013Q2

REPORT INFORMATION
  Report Type: Spontaneous
  Country: SE (occurrence: SE)
  Receive Date: 20130614
  Receipt Date: 20130614
  Transmission Date: 20140414
  Serious: Yes (Death, Other)
  Sender: FDA-Public Use
  Company Number: SE-TEVA-411974ISR

PATIENT
  Age: 66 Year
  Sex: Male

DRUGS (2)
  1. AZILECT [Suspect]
     Indication: PARKINSON^S DISEASE
     Dosage: 1 MILLIGRAM DAILY;
     Route: 048
     Dates: start: 20060921, end: 20130226
  2. SINEMET 25/100 [Concomitant]
     Indication: PARKINSON^S DISEASE
     Route: 048
     Dates: start: 20120229, end: 20130226

REACTIONS (3)
  - Completed suicide [Fatal]
  - Anxiety [Unknown]
  - Delusion [Unknown]
